FAERS Safety Report 17226429 (Version 1)
Quarter: 2020Q1

REPORT INFORMATION
  Report Type: Spontaneous
  Country: CN (occurrence: CN)
  Receive Date: 20200102
  Receipt Date: 20200102
  Transmission Date: 20200409
  Serious: Yes (Other)
  Sender: FDA-Public Use
  Company Number: CN-PFIZER INC-2019562267

PATIENT

DRUGS (1)
  1. CELEBREX [Suspect]
     Active Substance: CELECOXIB
     Indication: BACK PAIN
     Route: 048

REACTIONS (4)
  - Condition aggravated [Unknown]
  - Pulse abnormal [Unknown]
  - Heart rate decreased [Unknown]
  - Cardiac disorder [Unknown]
